FAERS Safety Report 13698021 (Version 1)
Quarter: 2017Q2

REPORT INFORMATION
  Report Type: Report from Study
  Country: US (occurrence: US)
  Receive Date: 20170628
  Receipt Date: 20170628
  Transmission Date: 20170830
  Serious: Yes (Other)
  Sender: FDA-Public Use
  Company Number: US-GILEAD-2017-0266476

PATIENT
  Age: 76 Year
  Sex: Female
  Weight: 65.31 kg

DRUGS (16)
  1. FUROSEMIDE. [Concomitant]
     Active Substance: FUROSEMIDE
  2. AMBRISENTAN [Suspect]
     Active Substance: AMBRISENTAN
     Indication: PRODUCT USED FOR UNKNOWN INDICATION
     Dosage: 5 MG, QD
     Route: 065
     Dates: end: 20170427
  3. GABAPENTIN. [Concomitant]
     Active Substance: GABAPENTIN
  4. SYNTHROID [Concomitant]
     Active Substance: LEVOTHYROXINE SODIUM
  5. SILDENAFIL CITRATE. [Concomitant]
     Active Substance: SILDENAFIL CITRATE
  6. ASPIRIN                            /00002701/ [Concomitant]
     Active Substance: ASPIRIN
  7. SYMBICORT [Concomitant]
     Active Substance: BUDESONIDE\FORMOTEROL FUMARATE DIHYDRATE
  8. TRAMADOL. [Concomitant]
     Active Substance: TRAMADOL
  9. AMLODIPINE [Concomitant]
     Active Substance: AMLODIPINE BESYLATE
  10. SIMVASTATIN. [Concomitant]
     Active Substance: SIMVASTATIN
  11. TOPROL XL [Concomitant]
     Active Substance: METOPROLOL SUCCINATE
  12. FLURBIPROFEN. [Concomitant]
     Active Substance: FLURBIPROFEN
  13. HYDROCHLOROTHIAZIDE. [Concomitant]
     Active Substance: HYDROCHLOROTHIAZIDE
  14. LANTUS [Concomitant]
     Active Substance: INSULIN GLARGINE
  15. PANTOPRAZOLE [Concomitant]
     Active Substance: PANTOPRAZOLE
  16. OXYGEN. [Concomitant]
     Active Substance: OXYGEN

REACTIONS (4)
  - Oxygen saturation decreased [Unknown]
  - Nasal congestion [Not Recovered/Not Resolved]
  - Oedema [Unknown]
  - Oedema peripheral [Unknown]

NARRATIVE: CASE EVENT DATE: 201701
